FAERS Safety Report 8846887 (Version 2)
Quarter: 2013Q1

REPORT INFORMATION
  Report Type: Spontaneous
  Country: US (occurrence: None)
  Receive Date: 20121016
  Receipt Date: 20121105
  Transmission Date: 20140127
  Serious: Yes (Other)
  Sender: FDA-Public Use
  Company Number: ADR-2012-01867

PATIENT
  Sex: Male

DRUGS (2)
  1. LIORESAL INTRATHECAL (BACLOFEN INJECTION) [Suspect]
     Indication: MUSCLE SPASTICITY
     Dosage: 1100.9 MCG/DAY
  2. LIORESAL INTRATHECAL (BACLOFEN INJECTION) [Suspect]
     Indication: CEREBRAL PALSY
     Dosage: 1100.9 MCG/DAY

REACTIONS (7)
  - Photosensitivity reaction [None]
  - Nausea [None]
  - Feeling jittery [None]
  - Pruritus [None]
  - Irritability [None]
  - Insomnia [None]
  - Device breakage [None]
